FAERS Safety Report 15665634 (Version 4)
Quarter: 2019Q1

REPORT INFORMATION
  Report Type: Spontaneous
  Country: GB (occurrence: GB)
  Receive Date: 20181128
  Receipt Date: 20190221
  Transmission Date: 20190417
  Serious: Yes (Disabling)
  Sender: FDA-Public Use
  Company Number: GB-GW PHARMA-201811GBGW0574

PATIENT

DRUGS (5)
  1. NITROFURANTOIN. [Concomitant]
     Active Substance: NITROFURANTOIN
     Indication: PROPHYLAXIS URINARY TRACT INFECTION
     Dosage: 25 MILLIGRAM, QD
     Route: 065
  2. EPIDIOLEX [Suspect]
     Active Substance: CANNABIDIOL
     Indication: EPILEPSY
     Dosage: 65 MILLIGRAM, QD, 2.5 MG/KG
     Route: 065
     Dates: start: 20181106
  3. EPIDIOLEX [Suspect]
     Active Substance: CANNABIDIOL
     Dosage: 390 MILIGRAM, 15 MG/KG/DAY
     Route: 065
     Dates: start: 20181204
  4. MIDAZOLAM [Suspect]
     Active Substance: MIDAZOLAM HYDROCHLORIDE
     Indication: PRODUCT USED FOR UNKNOWN INDICATION
     Dosage: 20 MCG/KG/MIN
     Route: 065
     Dates: start: 20181102, end: 20181112
  5. LAMOTRIGINE. [Concomitant]
     Active Substance: LAMOTRIGINE
     Indication: EPILEPSY
     Dosage: 125 MILLIGRAM, BID
     Route: 065
     Dates: start: 201711

REACTIONS (1)
  - Agitation [Recovered/Resolved]

NARRATIVE: CASE EVENT DATE: 20181112
